FAERS Safety Report 9231042 (Version 1)
Quarter: 2013Q2

REPORT INFORMATION
  Report Type: Report from Study
  Country: GB (occurrence: GB)
  Receive Date: 20130415
  Receipt Date: 20130415
  Transmission Date: 20140414
  Serious: Yes (Death)
  Sender: FDA-Public Use
  Company Number: GB-ROCHE-1213226

PATIENT
  Sex: Female
  Weight: 76 kg

DRUGS (2)
  1. RITUXIMAB [Suspect]
     Indication: RHEUMATOID ARTHRITIS
     Dosage: LAST DOSE PRIOR TO EVENT ON 01/NOV/2010
     Route: 065
     Dates: start: 20101018
  2. SULPHASALAZINE [Concomitant]

REACTIONS (1)
  - Death [Fatal]
